FAERS Safety Report 12436135 (Version 2)
Quarter: 2016Q2

REPORT INFORMATION
  Report Type: Report from Study
  Country: US (occurrence: US)
  Receive Date: 20160604
  Receipt Date: 20160617
  Transmission Date: 20160815
  Serious: Yes (Hospitalization)
  Sender: FDA-Public Use
  Company Number: US-BIOGEN-2016BI00244839

PATIENT
  Age: 0 Day
  Sex: Male

DRUGS (1)
  1. TYSABRI [Suspect]
     Active Substance: NATALIZUMAB
     Indication: MATERNAL EXPOSURE TIMING UNSPECIFIED
     Dosage: INFUSED OVER ONE HOUR
     Route: 064
     Dates: start: 20121015, end: 20150721

REACTIONS (4)
  - Heart rate increased [Recovered/Resolved]
  - Foetal exposure timing unspecified [Recovered/Resolved]
  - Tachypnoea [Recovered/Resolved]
  - Jaundice neonatal [Recovered/Resolved]

NARRATIVE: CASE EVENT DATE: 20160321
